FAERS Safety Report 17742507 (Version 1)
Quarter: 2020Q2

REPORT INFORMATION
  Report Type: Spontaneous
  Country: US (occurrence: US)
  Receive Date: 20200504
  Receipt Date: 20200504
  Transmission Date: 20200714
  Serious: Yes (Other)
  Sender: FDA-Public Use
  Company Number: US-ABBVIE-20K-163-3385358-00

PATIENT
  Sex: Female

DRUGS (1)
  1. NIMBEX [Suspect]
     Active Substance: CISATRACURIUM BESYLATE
     Indication: ACCIDENTAL EXPOSURE TO PRODUCT
     Route: 042

REACTIONS (2)
  - Accidental exposure to product [Not Recovered/Not Resolved]
  - Product package associated injury [Recovering/Resolving]

NARRATIVE: CASE EVENT DATE: 20200429
